FAERS Safety Report 23043918 (Version 1)
Quarter: 2023Q4

REPORT INFORMATION
  Report Type: Spontaneous
  Country: US (occurrence: US)
  Receive Date: 20231009
  Receipt Date: 20231009
  Transmission Date: 20240110
  Serious: Yes (Hospitalization, Other)
  Sender: FDA-Public Use
  Company Number: US-AMGEN-USASP2023176585

PATIENT
  Age: 73 Year
  Sex: Male

DRUGS (2)
  1. FILGRASTIM [Suspect]
     Active Substance: FILGRASTIM
     Indication: Neutropenic sepsis
     Dosage: UNK
     Route: 065
  2. DECITABINE [Concomitant]
     Active Substance: DECITABINE

REACTIONS (1)
  - Organising pneumonia [Unknown]
